FAERS Safety Report 20059473 (Version 1)
Quarter: 2021Q4

REPORT INFORMATION
  Report Type: Spontaneous
  Country: US (occurrence: None)
  Receive Date: 20211111
  Receipt Date: 20211111
  Transmission Date: 20220304
  Serious: Yes (Hospitalization)
  Sender: FDA-Public Use
  Company Number: None

PATIENT
  Age: 46 Year
  Sex: Female

DRUGS (1)
  1. ICATIBANT [Suspect]
     Active Substance: ICATIBANT ACETATE
     Route: 058
     Dates: start: 202111

REACTIONS (3)
  - Abdominal pain upper [None]
  - Abdominal distension [None]
  - Pain [None]

NARRATIVE: CASE EVENT DATE: 20211111
